FAERS Safety Report 19735292 (Version 1)
Quarter: 2021Q3

REPORT INFORMATION
  Report Type: Report from Study
  Country: US (occurrence: US)
  Receive Date: 20210824
  Receipt Date: 20210824
  Transmission Date: 20211014
  Serious: Yes (Other)
  Sender: FDA-Public Use
  Company Number: US-BAUSCH-BL-2020-012345

PATIENT
  Age: 78 Year
  Sex: Female

DRUGS (1)
  1. SILIQ [Suspect]
     Active Substance: BRODALUMAB
     Indication: PSORIASIS
     Dosage: 210 MG/ 1.5 ML, PRE FILLED SYRINGE, AT WEEK 0, 1, 2 AS DIRECTED
     Route: 058
     Dates: start: 201912

REACTIONS (2)
  - Therapeutic product effect incomplete [Unknown]
  - Bladder operation [Unknown]
